FAERS Safety Report 4378479-3 (Version None)
Quarter: 2004Q2

REPORT INFORMATION
  Report Type: 
  Country: None (occurrence: None)
  Receive Date: 20040609
  Receipt Date: 20040603
  Transmission Date: 20050107
  Serious: Yes (Other)
  Sender: FDA-Public Use
  Company Number: USA-2004-0015453

PATIENT
  Age: 46 Year
  Sex: Female

DRUGS (5)
  1. MORPHINE SULFATE [Suspect]
     Indication: CANCER PAIN
     Dosage: SEE IMAGE
  2. FUROSEMIDE [Concomitant]
  3. SPIRONOLACTONE [Concomitant]
  4. HALOPERIDOL [Concomitant]
  5. RILMAZAFONE (RILMAZAFONE) [Concomitant]

REACTIONS (7)
  - DRUG EFFECT DECREASED [None]
  - DRUG LEVEL INCREASED [None]
  - DRUG TOLERANCE INCREASED [None]
  - MALIGNANT NEOPLASM PROGRESSION [None]
  - NEOPLASM PROGRESSION [None]
  - PAIN [None]
  - PANCOAST'S TUMOUR [None]
